FAERS Safety Report 24742384 (Version 2)
Quarter: 2025Q1

REPORT INFORMATION
  Report Type: Spontaneous
  Country: US (occurrence: US)
  Receive Date: 20241217
  Receipt Date: 20250103
  Transmission Date: 20250409
  Serious: No
  Sender: AVERITAS
  Company Number: US-GRUNENTHAL-2024-137867

PATIENT
  Sex: Female

DRUGS (1)
  1. QUTENZA [Suspect]
     Active Substance: CAPSAICIN
     Indication: Diabetic neuropathy
     Route: 061
     Dates: start: 20241210, end: 20241210

REACTIONS (2)
  - Application site pain [Recovering/Resolving]
  - Application site discolouration [Recovering/Resolving]

NARRATIVE: CASE EVENT DATE: 20241210
